FAERS Safety Report 8255269-2 (Version None)
Quarter: 2012Q1

REPORT INFORMATION
  Report Type: 
  Country: None (occurrence: None)
  Receive Date: 20120330
  Receipt Date: 20120314
  Transmission Date: 20120608
  Serious: Yes (Death, Hospitalization)
  Sender: FDA-Public Use
  Company Number: CIO12004546

PATIENT
  Sex: Female

DRUGS (3)
  1. TYLENOL (CAPLET) [Suspect]
     Indication: ANALGESIC THERAPY
     Dosage: UNKNOWN, ORAL
     Route: 048
  2. NYQUIL, FORM/VERSION/FLAVOR UNKNOWN (ETHANOL UNKNOWN UNK, CHLORPHENAMI [Suspect]
     Indication: SINUS DISORDER
     Dosage: UNKNOWN, ORAL
  3. NYQUIL, FORM/VERSION/FLAVOR UNKNOWN (ETHANOL UNKNOWN UNK, CHLORPHENAMI [Suspect]
     Indication: NASOPHARYNGITIS
     Dosage: UNKNOWN, ORAL

REACTIONS (8)
  - FEELING COLD [None]
  - CONFUSIONAL STATE [None]
  - VOMITING [None]
  - CHEST PAIN [None]
  - TOXICITY TO VARIOUS AGENTS [None]
  - DIZZINESS [None]
  - HOT FLUSH [None]
  - HEPATIC FAILURE [None]
